FAERS Safety Report 16574980 (Version 1)
Quarter: 2019Q3

REPORT INFORMATION
  Report Type: Spontaneous
  Country: FR (occurrence: FR)
  Receive Date: 20190715
  Receipt Date: 20190715
  Transmission Date: 20191004
  Serious: Yes (Hospitalization)
  Sender: FDA-Public Use
  Company Number: PHHY2019FR160016

PATIENT
  Age: 54 Year
  Sex: Female

DRUGS (3)
  1. OXAZEPAM. [Suspect]
     Active Substance: OXAZEPAM
     Indication: SUICIDE ATTEMPT
     Dosage: 1 DF (1 TOTAL)
     Route: 048
     Dates: start: 20180808, end: 20180808
  2. HYDROXYZINE [Suspect]
     Active Substance: HYDROXYZINE HYDROCHLORIDE
     Indication: SUICIDE ATTEMPT
     Dosage: 1 DF (1 TOTAL)
     Route: 048
     Dates: start: 20180808, end: 20180808
  3. CYAMEMAZINE [Suspect]
     Active Substance: CYAMEMAZINE
     Indication: SUICIDE ATTEMPT
     Dosage: 1 DF (1 TOTAL)
     Route: 048
     Dates: start: 20180808, end: 20180808

REACTIONS (3)
  - Toxicity to various agents [Recovered/Resolved]
  - Sedation [Recovered/Resolved]
  - Psychomotor skills impaired [Recovered/Resolved]

NARRATIVE: CASE EVENT DATE: 20180808
